FAERS Safety Report 22315975 (Version 1)
Quarter: 2023Q2

REPORT INFORMATION
  Report Type: Spontaneous
  Country: FR (occurrence: FR)
  Receive Date: 20230512
  Receipt Date: 20230512
  Transmission Date: 20230722
  Serious: Yes (Other)
  Sender: FDA-Public Use
  Company Number: FR-JAZZ PHARMACEUTICALS-2023-FR-010343

PATIENT
  Age: 27 Year
  Sex: Female
  Weight: 93 kg

DRUGS (2)
  1. XYREM [Suspect]
     Active Substance: SODIUM OXYBATE
     Indication: Cataplexy
     Dosage: 9 GRAM, QD
     Route: 048
     Dates: start: 20230126, end: 202304
  2. XYREM [Suspect]
     Active Substance: SODIUM OXYBATE
     Indication: Narcolepsy

REACTIONS (7)
  - Cataplexy [Recovered/Resolved]
  - Asthenia [Recovered/Resolved]
  - Disease recurrence [Recovered/Resolved]
  - Vertigo [Recovered/Resolved]
  - Muscular weakness [Recovered/Resolved]
  - Formication [Recovered/Resolved]
  - Nausea [Recovered/Resolved]

NARRATIVE: CASE EVENT DATE: 20230201
